FAERS Safety Report 7736459-1 (Version None)
Quarter: 2011Q3

REPORT INFORMATION
  Report Type: 
  Country: None (occurrence: None)
  Receive Date: 20110908
  Receipt Date: 20110906
  Transmission Date: 20111222
  Serious: Yes (Hospitalization)
  Sender: FDA-Public Use
  Company Number: IR-ROXANE LABORATORIES, INC.-2011-DE-04995GD

PATIENT
  Age: 20 Year
  Sex: Male

DRUGS (1)
  1. CODEINE SULFATE [Suspect]
     Dosage: 720 MG
     Route: 048

REACTIONS (3)
  - DRUG ABUSE [None]
  - ACUTE MYOCARDIAL INFARCTION [None]
  - CORONARY ARTERY THROMBOSIS [None]
